FAERS Safety Report 10648121 (Version 1)
Quarter: 2014Q4

REPORT INFORMATION
  Report Type: Spontaneous
  Country: US (occurrence: None)
  Receive Date: 20141211
  Receipt Date: 20141211
  Transmission Date: 20150529
  Serious: Yes (Other)
  Sender: FDA-Public Use
  Company Number: None

PATIENT
  Age: 2 Year
  Sex: Male
  Weight: 15.88 kg

DRUGS (1)
  1. MIRALAX [Suspect]
     Active Substance: POLYETHYLENE GLYCOL 3350
     Indication: CONSTIPATION
     Dosage: 1 CAP FULL DAILY ONCE DAILY TAKEN BY MOUTH
     Route: 048

REACTIONS (5)
  - Nervousness [None]
  - Anxiety [None]
  - Tic [None]
  - Mood swings [None]
  - Depression [None]
